FAERS Safety Report 17440329 (Version 2)
Quarter: 2020Q1

REPORT INFORMATION
  Report Type: Spontaneous
  Country: US (occurrence: US)
  Receive Date: 20200220
  Receipt Date: 20200311
  Transmission Date: 20200409
  Serious: No
  Sender: FDA-Public Use
  Company Number: US-JNJFOC-20200217244

PATIENT
  Age: 58 Year
  Sex: Female
  Weight: 95.34 kg

DRUGS (9)
  1. DURAGESIC [Suspect]
     Active Substance: FENTANYL
     Indication: SPINAL OSTEOARTHRITIS
     Route: 062
     Dates: end: 2007
  2. FENTANYL. [Suspect]
     Active Substance: FENTANYL
     Indication: INTERVERTEBRAL DISC PROTRUSION
  3. DURAGESIC [Suspect]
     Active Substance: FENTANYL
     Indication: INTERVERTEBRAL DISC PROTRUSION
     Route: 062
     Dates: end: 2007
  4. DURAGESIC [Suspect]
     Active Substance: FENTANYL
     Route: 062
     Dates: start: 20190210
  5. FENTANYL. [Suspect]
     Active Substance: FENTANYL
     Indication: SPINAL STENOSIS
     Route: 062
     Dates: end: 201902
  6. FENTANYL. [Suspect]
     Active Substance: FENTANYL
     Indication: SPINAL OSTEOARTHRITIS
  7. DURAGESIC [Suspect]
     Active Substance: FENTANYL
     Indication: SPINAL STENOSIS
     Route: 062
     Dates: start: 2005
  8. DURAGESIC [Suspect]
     Active Substance: FENTANYL
     Route: 062
     Dates: end: 2007
  9. DURAGESIC [Suspect]
     Active Substance: FENTANYL
     Route: 062
     Dates: start: 201902, end: 20200210

REACTIONS (16)
  - Arthritis [Not Recovered/Not Resolved]
  - Hyperhidrosis [Unknown]
  - Pain [Unknown]
  - Vomiting [Unknown]
  - Diarrhoea [Unknown]
  - Nausea [Unknown]
  - Visual impairment [Not Recovered/Not Resolved]
  - Drug ineffective [Unknown]
  - Wrong technique in product usage process [Unknown]
  - Withdrawal syndrome [Unknown]
  - Restlessness [Unknown]
  - Hypertension [Unknown]
  - Anxiety [Not Recovered/Not Resolved]
  - Astigmatism [Not Recovered/Not Resolved]
  - Body temperature increased [Unknown]
  - Medication error [Not Recovered/Not Resolved]

NARRATIVE: CASE EVENT DATE: 2005
